FAERS Safety Report 9038401 (Version 1)
Quarter: 2013Q1

REPORT INFORMATION
  Report Type: Report from Study
  Country: PR (occurrence: PR)
  Receive Date: 20130130
  Receipt Date: 20130130
  Transmission Date: 20140127
  Serious: No
  Sender: FDA-Public Use
  Company Number: PR-ABBOTT-12P-131-0898814-00

PATIENT
  Age: 64 Year
  Sex: Female
  Weight: 78.09 kg

DRUGS (12)
  1. HUMIRA 40 MG/0.8 ML PEN [Suspect]
     Indication: RHEUMATOID ARTHRITIS
     Route: 058
     Dates: start: 2006, end: 20111223
  2. HUMIRA 40 MG/0.8 ML PEN [Suspect]
     Route: 058
     Dates: start: 201202, end: 20120304
  3. HUMIRA 40 MG/0.8 ML PEN [Suspect]
     Route: 058
     Dates: start: 20120405
  4. HUMIRA 40 MG/0.8 ML PEN [Suspect]
     Route: 058
     Dates: start: 201202
  5. HUMIRA 40 MG/0.8 ML PEN [Suspect]
     Route: 058
     Dates: start: 20120614
  6. SYNTHROID [Concomitant]
     Indication: HYPOTHYROIDISM
     Dosage: US12-003805
     Route: 048
     Dates: start: 1975
  7. FOLIC ACID [Concomitant]
     Indication: THALASSAEMIA BETA
     Route: 048
  8. PRILOSEC [Concomitant]
     Indication: GASTRITIS
     Route: 048
  9. PROTONIX [Concomitant]
     Indication: GASTRITIS
     Route: 048
  10. HYDROTHIAZIDE [Concomitant]
     Indication: HYPERTENSION
     Route: 048
  11. ATACAND [Concomitant]
     Indication: HYPERTENSION
  12. METHOTREXATE [Concomitant]
     Indication: RHEUMATOID ARTHRITIS
     Dosage: 15MG EVERY WEEK
     Route: 048

REACTIONS (9)
  - Melanocytic naevus [Recovered/Resolved]
  - Helicobacter infection [Recovered/Resolved]
  - Sinusitis [Recovered/Resolved]
  - Urticaria [Recovered/Resolved]
  - Pruritus [Unknown]
  - Nasopharyngitis [Recovered/Resolved]
  - Unevaluable event [Recovered/Resolved]
  - Dysuria [Unknown]
  - Discomfort [Unknown]
